FAERS Safety Report 7356116-3 (Version None)
Quarter: 2011Q1

REPORT INFORMATION
  Report Type: 
  Country: None (occurrence: None)
  Receive Date: 20110316
  Receipt Date: 20101001
  Transmission Date: 20110831
  Serious: Yes (Hospitalization, Other)
  Sender: FDA-Public Use
  Company Number: US-BAYER-200939485NA

PATIENT
  Sex: Female
  Weight: 79.365 kg

DRUGS (7)
  1. NAPROXEN [Concomitant]
     Dosage: 375 MG, BID
     Dates: start: 20060301
  2. YAZ [Suspect]
     Indication: PRODUCT USED FOR UNKNOWN INDICATION
     Dosage: UNK
     Dates: start: 20060617, end: 20060828
  3. NASONEX [Concomitant]
     Dosage: UNK
     Dates: start: 20060510
  4. OMNICEF [Concomitant]
     Dosage: 300 MG, BID
     Route: 048
     Dates: start: 20060510
  5. PREDNISONE TAB [Concomitant]
     Dosage: 20 MG, QD
     Dates: start: 20060905
  6. CYCLOBENZAPRINE [Concomitant]
     Dosage: 10 MG, TID
     Dates: start: 20060301
  7. ALLEGRA D 24 HOUR [Concomitant]
     Dosage: UNK UNK, QD
     Route: 048
     Dates: start: 20060513

REACTIONS (2)
  - PULMONARY INFARCTION [None]
  - PULMONARY EMBOLISM [None]
